FAERS Safety Report 5720051-4 (Version None)
Quarter: 2008Q2

REPORT INFORMATION
  Report Type: 
  Country: None (occurrence: None)
  Receive Date: 20080428
  Receipt Date: 20080418
  Transmission Date: 20081010
  Serious: No
  Sender: FDA-Public Use
  Company Number: CO-BAXTER-2008BH003932

PATIENT
  Age: 23 Year
  Sex: Female

DRUGS (2)
  1. LACTATED RINGER'S [Suspect]
     Indication: DEHYDRATION
     Route: 042
     Dates: start: 20080418, end: 20080418
  2. MISOPROSTOL [Concomitant]
     Indication: ABORTION INDUCED
     Route: 067
     Dates: start: 20080418, end: 20080418

REACTIONS (2)
  - COUGH [None]
  - SUFFOCATION FEELING [None]
